FAERS Safety Report 13953489 (Version 1)
Quarter: 2017Q3

REPORT INFORMATION
  Report Type: Spontaneous
  Country: US (occurrence: None)
  Receive Date: 20170908
  Receipt Date: 20170908
  Transmission Date: 20171128
  Serious: Yes (Death, Hospitalization)
  Sender: FDA-Public Use
  Company Number: None

PATIENT
  Age: 3 Year
  Sex: Male
  Weight: 16.2 kg

DRUGS (5)
  1. METHOTREXATE. [Suspect]
     Active Substance: METHOTREXATE
     Dates: end: 20140822
  2. ONCASPAR [Suspect]
     Active Substance: PEGASPARGASE
     Dates: end: 20140819
  3. VINCRISTINE SULFATE. [Suspect]
     Active Substance: VINCRISTINE SULFATE
     Dates: end: 20140829
  4. CYTARABINE. [Suspect]
     Active Substance: CYTARABINE
     Dates: end: 20140815
  5. DEXAMETHASONE. [Suspect]
     Active Substance: DEXAMETHASONE
     Dates: end: 20140831

REACTIONS (16)
  - Haemorrhage intracranial [None]
  - Acute kidney injury [None]
  - Pulmonary haemorrhage [None]
  - Irritability [None]
  - Hyperglycaemia [None]
  - Hypertension [None]
  - Weight increased [None]
  - Fluid retention [None]
  - Hypotension [None]
  - Respiratory moniliasis [None]
  - Seizure [None]
  - Left ventricular hypertrophy [None]
  - Hypoxia [None]
  - Lung infiltration [None]
  - Posterior reversible encephalopathy syndrome [None]
  - Oedema [None]

NARRATIVE: CASE EVENT DATE: 20140831
